FAERS Safety Report 8547440-7 (Version None)
Quarter: 2012Q3

REPORT INFORMATION
  Report Type: 
  Country: None (occurrence: None)
  Receive Date: 20120727
  Receipt Date: 20120413
  Transmission Date: 20120928
  Serious: No
  Sender: FDA-Public Use
  Company Number: US-ASTRAZENECA-2012SE24913

PATIENT
  Age: 52 Year
  Sex: Female

DRUGS (2)
  1. SEROQUEL [Suspect]
     Indication: SLEEP DISORDER
     Route: 048
  2. IMODIUM A-D [Concomitant]

REACTIONS (7)
  - OFF LABEL USE [None]
  - ANAEMIA [None]
  - DIARRHOEA [None]
  - WEIGHT DECREASED [None]
  - MEMORY IMPAIRMENT [None]
  - WEIGHT GAIN POOR [None]
  - CONSTIPATION [None]
